FAERS Safety Report 23218886 (Version 1)
Quarter: 2023Q4

REPORT INFORMATION
  Report Type: Report from Study
  Country: JP (occurrence: JP)
  Receive Date: 20231122
  Receipt Date: 20231122
  Transmission Date: 20240110
  Serious: Yes (Death, Other)
  Sender: FDA-Public Use
  Company Number: JP-SUN PHARMACEUTICAL INDUSTRIES LTD-2023R1-419204

PATIENT
  Age: 5 Month
  Sex: Female

DRUGS (6)
  1. CARBOPLATIN [Suspect]
     Active Substance: CARBOPLATIN
     Indication: Chemotherapy
     Dosage: UNK
     Route: 065
  2. MELPHALAN [Suspect]
     Active Substance: MELPHALAN
     Indication: Chemotherapy
     Dosage: UNK (0.82 X 10 TO POWER 6)
     Route: 065
  3. CYCLOPHOSPHAMIDE [Suspect]
     Active Substance: CYCLOPHOSPHAMIDE
     Indication: Chemotherapy
     Dosage: UNK (0.82 X 10 TO POWER 6)
     Route: 065
  4. ETOPOSIDE [Suspect]
     Active Substance: ETOPOSIDE
     Indication: Chemotherapy
     Dosage: UNK
     Route: 065
  5. IFOSFAMIDE [Suspect]
     Active Substance: IFOSFAMIDE
     Indication: Chemotherapy
     Dosage: UNK
     Route: 065
  6. TOPOTECAN [Suspect]
     Active Substance: TOPOTECAN HYDROCHLORIDE
     Indication: Chemotherapy
     Dosage: UNK (0.82 X 10 TO POWER 6)
     Route: 065

REACTIONS (2)
  - Acute myeloid leukaemia [Fatal]
  - Disease progression [Unknown]
